FAERS Safety Report 4477764-4 (Version None)
Quarter: 2004Q4

REPORT INFORMATION
  Report Type: 
  Country: None (occurrence: None)
  Receive Date: 20041014
  Receipt Date: 20040930
  Transmission Date: 20050328
  Serious: No
  Sender: FDA-Public Use
  Company Number: APP200400769

PATIENT
  Age: 60 Year
  Sex: Female

DRUGS (3)
  1. PAMIDRONATE DISODIUM INJECTION (PAMIDRONATE DISODIUM) [Suspect]
     Indication: METASTASES TO BONE
     Dosage: 3 MG (90 MG, 1 IN 1 M), INTRAVENOUS
     Route: 042
     Dates: start: 20030901, end: 20040701
  2. FASLODEX [Concomitant]
  3. CALCIUM (CALCIUM) [Concomitant]

REACTIONS (1)
  - GLOMERULONEPHRITIS [None]
